FAERS Safety Report 5924008-X (Version None)
Quarter: 2008Q4

REPORT INFORMATION
  Report Type: 
  Country: None (occurrence: None)
  Receive Date: 20081020
  Receipt Date: 20081010
  Transmission Date: 20090506
  Serious: Yes (Hospitalization, Other)
  Sender: FDA-Public Use
  Company Number: PHHY2008IE22450

PATIENT
  Sex: Male

DRUGS (9)
  1. CLOZARIL [Suspect]
     Indication: SCHIZOPHRENIA
     Dosage: 12.5 MG NOCTE
     Dates: start: 20080905
  2. CLOZARIL [Suspect]
     Dosage: 225 MG
  3. CLOZARIL [Suspect]
     Dosage: 75 MG, BID
  4. CLOZARIL [Suspect]
     Dosage: 50 MG, BID
  5. HYOSCINE [Concomitant]
     Indication: SALIVARY HYPERSECRETION
     Dosage: 300 /DAY
     Dates: start: 20080913, end: 20080925
  6. AUGMENTIN '125' [Concomitant]
     Indication: RESPIRATORY TRACT INFECTION
     Dosage: 62.5 MG, BID
     Route: 048
     Dates: start: 20080924, end: 20080925
  7. SALBUTAMOL [Concomitant]
     Indication: ASTHMA
     Dosage: 2 PUFFS BID
     Dates: start: 20080714, end: 20080925
  8. BECLOMETHASONE DIPROPIONATE [Concomitant]
     Indication: ASTHMA
     Dosage: 100 MG, BID
     Dates: start: 20080714, end: 20080925
  9. SENOKOT [Concomitant]
     Indication: CONSTIPATION
     Dosage: 2 TABLETS NOCTE
     Dates: start: 20080918, end: 20080925

REACTIONS (9)
  - BLOOD PRESSURE FLUCTUATION [None]
  - CARDIAC DISORDER [None]
  - CONSTIPATION [None]
  - DYSPNOEA [None]
  - HEART RATE INCREASED [None]
  - HYPOTENSION [None]
  - LEFT VENTRICULAR HYPERTROPHY [None]
  - SALIVARY HYPERSECRETION [None]
  - TACHYCARDIA [None]
